FAERS Safety Report 5444755-6 (Version None)
Quarter: 2007Q3

REPORT INFORMATION
  Report Type: 
  Country: None (occurrence: None)
  Receive Date: 20070906
  Receipt Date: 20070228
  Transmission Date: 20080115
  Serious: No
  Sender: FDA-Public Use
  Company Number: A0641368A

PATIENT
  Age: 54 Year
  Sex: Female

DRUGS (22)
  1. REQUIP [Suspect]
     Indication: RESTLESS LEGS SYNDROME
     Dosage: 2MG PER DAY
     Route: 048
     Dates: start: 20060301, end: 20070101
  2. PHENERGAN HCL [Concomitant]
  3. PROVIGIL [Concomitant]
  4. AMBIEN [Concomitant]
  5. PROPRANOLOL [Concomitant]
  6. KLONOPIN [Concomitant]
  7. ADDERALL [Concomitant]
  8. XANAX [Concomitant]
  9. WELLBUTRIN XL [Concomitant]
  10. GEODON [Concomitant]
  11. VITAMINS [Concomitant]
  12. BONIVA [Concomitant]
  13. BROMOCRIPTINE MESYLATE [Concomitant]
  14. CYTOMEL [Concomitant]
  15. CARAFATE [Concomitant]
  16. NEXIUM [Concomitant]
  17. LEVOXYL [Concomitant]
  18. REGLAN [Concomitant]
  19. DITROPAN XL [Concomitant]
  20. DHEA [Concomitant]
  21. AXID [Concomitant]
  22. DEPO-PROVERA [Concomitant]

REACTIONS (1)
  - OBSESSIVE RUMINATION [None]
